FAERS Safety Report 6450414-3 (Version None)
Quarter: 2009Q4

REPORT INFORMATION
  Report Type: 
  Country: None (occurrence: None)
  Receive Date: 20091123
  Receipt Date: 20091113
  Transmission Date: 20100525
  Serious: Yes (Hospitalization)
  Sender: FDA-Public Use
  Company Number: US-ASTRAZENECA-2009SE26324

PATIENT
  Sex: Female

DRUGS (10)
  1. SEROQUEL [Suspect]
     Indication: BIPOLAR II DISORDER
     Route: 048
     Dates: start: 20061010, end: 20061010
  2. WELLBUTRIN [Suspect]
     Indication: BIPOLAR II DISORDER
     Route: 048
     Dates: start: 20061012, end: 20061012
  3. LEXAPRO [Suspect]
     Indication: DEPRESSION
     Route: 048
     Dates: start: 20040501, end: 20060101
  4. LEXAPRO [Suspect]
     Route: 048
     Dates: start: 20060101, end: 20061009
  5. LEXAPRO [Suspect]
     Route: 048
     Dates: start: 20061010, end: 20061016
  6. LEXAPRO [Suspect]
     Route: 048
     Dates: start: 20061016, end: 20081101
  7. LAMICTAL [Suspect]
     Indication: BIPOLAR II DISORDER
     Dates: start: 20060101, end: 20061011
  8. LAMICTAL [Suspect]
     Dates: start: 20060101, end: 20061011
  9. RISPERDAL [Suspect]
     Route: 048
     Dates: start: 20061016
  10. ZYRTEC-D 12 HOUR [Concomitant]

REACTIONS (8)
  - AGITATION [None]
  - AKATHISIA [None]
  - CONFUSIONAL STATE [None]
  - DIZZINESS [None]
  - HYPOMANIA [None]
  - OVERDOSE [None]
  - SUICIDAL IDEATION [None]
  - SWELLING FACE [None]
